FAERS Safety Report 21452167 (Version 1)
Quarter: 2022Q4

REPORT INFORMATION
  Report Type: Spontaneous
  Country: CN (occurrence: CN)
  Receive Date: 20221013
  Receipt Date: 20221013
  Transmission Date: 20230112
  Serious: Yes (Other)
  Sender: FDA-Public Use
  Company Number: CN-ELI_LILLY_AND_COMPANY-CN202209008172

PATIENT
  Weight: 65 kg

DRUGS (6)
  1. CIALIS [Suspect]
     Active Substance: TADALAFIL
     Indication: Erectile dysfunction
     Dosage: 5 MG, DAILY
     Route: 048
  2. CIALIS [Suspect]
     Active Substance: TADALAFIL
     Dosage: 5 MG, OTHER EVERY TWO DAYS
     Route: 048
  3. CIALIS [Suspect]
     Active Substance: TADALAFIL
     Dosage: 5 MG, OTHER EVERY THREE DAYS
     Route: 048
  4. CIALIS [Suspect]
     Active Substance: TADALAFIL
     Dosage: 5 MG, OTHER EVERY FOUR DAYS
     Route: 048
  5. CIALIS [Suspect]
     Active Substance: TADALAFIL
     Dosage: 5 MG, OTHER EVERY TWO DAYS
     Route: 048
  6. CIALIS [Suspect]
     Active Substance: TADALAFIL
     Dosage: 5 MG, OTHER EVERY THREE DAYS
     Route: 048

REACTIONS (4)
  - Abortion induced [Unknown]
  - Pyrexia [Unknown]
  - Paternal exposure during pregnancy [Unknown]
  - Drug ineffective [Unknown]
